FAERS Safety Report 16992518 (Version 2)
Quarter: 2025Q3

REPORT INFORMATION
  Report Type: Report from Study
  Country: CA (occurrence: CA)
  Receive Date: 20191105
  Receipt Date: 20250827
  Transmission Date: 20251020
  Serious: Yes (Other)
  Sender: ROCHE
  Company Number: CA-002147023-PHHY2015CA117005

PATIENT
  Age: 51 Year
  Sex: Female

DRUGS (4)
  1. XOLAIR [Suspect]
     Active Substance: OMALIZUMAB
     Indication: Chronic spontaneous urticaria
     Dosage: 300 MG, EVERY FOUR WEEKS
     Route: 058
     Dates: start: 20141119, end: 20181218
  2. XOLAIR [Suspect]
     Active Substance: OMALIZUMAB
     Route: 058
     Dates: start: 20160705
  3. XOLAIR [Suspect]
     Active Substance: OMALIZUMAB
     Route: 058
     Dates: start: 201609
  4. XOLAIR [Suspect]
     Active Substance: OMALIZUMAB
     Dosage: 300 MG, EVERY FOUR WEEKS
     Route: 058
     Dates: start: 20191017

REACTIONS (8)
  - Arthralgia [Not Recovered/Not Resolved]
  - Anaphylactic reaction [Unknown]
  - Angioedema [Unknown]
  - Urticaria [Unknown]
  - Pain [Unknown]
  - Feeling abnormal [Unknown]
  - Influenza like illness [Unknown]
  - Anxiety [Unknown]

NARRATIVE: CASE EVENT DATE: 20150101
